FAERS Safety Report 8391010 (Version 7)
Quarter: 2012Q4

REPORT INFORMATION
  Report Type: Report from Study
  Country: CA (occurrence: CA)
  Receive Date: 20120206
  Receipt Date: 20121019
  Transmission Date: 20130627
  Serious: Yes (Hospitalization, Other)
  Sender: FDA-Public Use
  Company Number: CA-ABBOTT-12P-028-0889049-00

PATIENT
  Age: 47 Year
  Sex: Female

DRUGS (7)
  1. HUMIRA [Suspect]
     Indication: CROHN^S DISEASE
     Route: 058
     Dates: start: 20111017, end: 20120912
  2. HUMIRA [Suspect]
     Route: 058
  3. RATIO-VENLAFAXINE [Concomitant]
     Indication: DEPRESSION
     Route: 048
  4. EURO FOLIC [Concomitant]
     Indication: ARTHRITIS
     Dosage: 5 mg weekly
     Route: 048
  5. METHOTREXATE [Concomitant]
     Indication: ARTHRITIS
     Route: 048
  6. CARBOCAL [Concomitant]
     Indication: MINERAL SUPPLEMENTATION
     Route: 048
  7. NEXIUM [Concomitant]
     Indication: GASTRIC DISORDER

REACTIONS (9)
  - Intestinal obstruction [Unknown]
  - Nausea [Not Recovered/Not Resolved]
  - Pyrexia [Not Recovered/Not Resolved]
  - Vomiting [Not Recovered/Not Resolved]
  - Abdominal pain upper [Not Recovered/Not Resolved]
  - Hernia [Unknown]
  - Hernia pain [Not Recovered/Not Resolved]
  - Abdominal pain [Unknown]
  - Nausea [Unknown]
